FAERS Safety Report 22800368 (Version 2)
Quarter: 2023Q4

REPORT INFORMATION
  Report Type: Spontaneous
  Country: JP (occurrence: JP)
  Receive Date: 20230808
  Receipt Date: 20231108
  Transmission Date: 20240110
  Serious: Yes (Other)
  Sender: FDA-Public Use
  Company Number: JP-ONO-2023JP019880

PATIENT
  Age: 58 Year
  Sex: Male
  Weight: 44.8 kg

DRUGS (6)
  1. OPDIVO [Suspect]
     Active Substance: NIVOLUMAB
     Indication: Gastric cancer
     Dosage: 480 MG, Q4W
     Route: 041
     Dates: start: 20210215, end: 20230508
  2. OPDIVO [Suspect]
     Active Substance: NIVOLUMAB
     Dosage: UNK
     Route: 041
     Dates: start: 20230710
  3. DAPAGLIFLOZIN [Concomitant]
     Active Substance: DAPAGLIFLOZIN
     Dosage: 10 MG
     Route: 048
     Dates: start: 20220704
  4. CORTRIL [Concomitant]
     Active Substance: HYDROCORTISONE
     Dosage: 10 MG
     Route: 048
     Dates: start: 20211220
  5. CARVEDILOL [Concomitant]
     Active Substance: CARVEDILOL
     Dosage: 2.5 MG
     Route: 048
     Dates: start: 20201022
  6. LOSARTAN POTASSIUM [Concomitant]
     Active Substance: LOSARTAN POTASSIUM
     Dosage: 25 MG
     Route: 048
     Dates: start: 20211220

REACTIONS (1)
  - Acute kidney injury [Recovered/Resolved]

NARRATIVE: CASE EVENT DATE: 20230605
